FAERS Safety Report 26006909 (Version 2)
Quarter: 2025Q4

REPORT INFORMATION
  Report Type: Spontaneous
  Country: US (occurrence: US)
  Receive Date: 20251106
  Receipt Date: 20251111
  Transmission Date: 20260118
  Serious: Yes (Other)
  Sender: BRACCO
  Company Number: US-BRACCO-2025US07670

PATIENT

DRUGS (3)
  1. CARDIOGEN-82 [Suspect]
     Active Substance: RUBIDIUM CHLORIDE RB-82
     Dosage: UNK UNK, SINGLE
     Dates: start: 20251027, end: 20251027
  2. CARDIOGEN-82 [Suspect]
     Active Substance: RUBIDIUM CHLORIDE RB-82
     Dosage: UNK UNK, SINGLE
     Dates: start: 20251027, end: 20251027
  3. LACTATED RINGERS SOLUTION [Concomitant]
     Active Substance: CALCIUM CHLORIDE\POTASSIUM CHLORIDE\SODIUM CHLORIDE\SODIUM LACTATE

REACTIONS (1)
  - Product preparation error [Unknown]

NARRATIVE: CASE EVENT DATE: 20251027
